FAERS Safety Report 4840621-5 (Version None)
Quarter: 2005Q4

REPORT INFORMATION
  Report Type: 
  Country: None (occurrence: None)
  Receive Date: 20051129
  Receipt Date: 20051129
  Transmission Date: 20060501
  Serious: No
  Sender: FDA-Public Use
  Company Number: None

PATIENT

DRUGS (2)
  1. DIPHENHYDRAMINE 25 MG CAPSULES UD MAJOR PHARMACEUTICALS/BARR LABS [Suspect]
     Dosage: 25 MG CAPSULES PO
     Route: 048
  2. DIPYRIDAMOLE [Suspect]
     Dosage: 25 MG TABLETS PO
     Route: 048

REACTIONS (2)
  - DRUG DISPENSING ERROR [None]
  - MEDICATION ERROR [None]
